FAERS Safety Report 10502345 (Version 1)
Quarter: 2014Q4

REPORT INFORMATION
  Report Type: Spontaneous
  Country: US (occurrence: None)
  Receive Date: 20141003
  Receipt Date: 20141003
  Transmission Date: 20150528
  Serious: Yes (Other)
  Sender: FDA-Public Use
  Company Number: VAL_03461_2014

PATIENT
  Sex: Male

DRUGS (5)
  1. ROCALTROL [Suspect]
     Active Substance: CALCITRIOL
     Indication: CHRONIC KIDNEY DISEASE
  2. EPOGEN (UKNOWN) [Concomitant]
  3. BICITRA /02399901/ (UNKNOWN) [Concomitant]
  4. NUTROPIN AQ [Suspect]
     Active Substance: SOMATROPIN
     Indication: CHRONIC KIDNEY DISEASE
     Route: 058
     Dates: start: 201305
  5. FERROUS SULFATE (UNKNOWN, UNKNOWN) [Concomitant]

REACTIONS (11)
  - Hyperparathyroidism [None]
  - Polydipsia [None]
  - Weight decreased [None]
  - Growth retardation [None]
  - Anaemia [None]
  - Constipation [None]
  - Nocturia [None]
  - Polyuria [None]
  - Blood creatinine increased [None]
  - Dysuria [None]
  - Abdominal pain [None]
